FAERS Safety Report 7778867-9 (Version None)
Quarter: 2011Q3

REPORT INFORMATION
  Report Type: 
  Country: None (occurrence: None)
  Receive Date: 20110926
  Receipt Date: 20110916
  Transmission Date: 20111222
  Serious: Yes (Death)
  Sender: FDA-Public Use
  Company Number: KR-ACTELION-A-CH2011-53608

PATIENT
  Age: 41 Year
  Sex: Female

DRUGS (1)
  1. TRACLEER [Suspect]
     Indication: PULMONARY ARTERIAL HYPERTENSION
     Dosage: 62.5 MG, BID
     Route: 048
     Dates: start: 20110211, end: 20110601

REACTIONS (3)
  - ARRHYTHMIA [None]
  - CARDIAC FAILURE [None]
  - PULMONARY ARTERIAL HYPERTENSION [None]
